FAERS Safety Report 12468913 (Version 1)
Quarter: 2016Q2

REPORT INFORMATION
  Report Type: Report from Study
  Country: CA (occurrence: CA)
  Receive Date: 20160615
  Receipt Date: 20160615
  Transmission Date: 20160815
  Serious: Yes (Death, Other)
  Sender: FDA-Public Use
  Company Number: CA-GILEAD-2016-0217318

PATIENT
  Age: 60 Year
  Sex: Male

DRUGS (12)
  1. ACYCLOVIR                          /00587301/ [Concomitant]
     Active Substance: ACYCLOVIR
  2. CANDESARTAN [Concomitant]
     Active Substance: CANDESARTAN
     Dosage: 4 MG, QD
  3. NEUPOGEN [Concomitant]
     Active Substance: FILGRASTIM
  4. BISOPROLOL [Concomitant]
     Active Substance: BISOPROLOL
     Dosage: 2.5 MG, QD
  5. ZYDELIG [Suspect]
     Active Substance: IDELALISIB
     Indication: CHRONIC LYMPHOCYTIC LEUKAEMIA
     Dosage: 150 MG, BID
     Route: 048
     Dates: start: 20160210
  6. GABAPENTIN. [Concomitant]
     Active Substance: GABAPENTIN
  7. TRAMADOL. [Concomitant]
     Active Substance: TRAMADOL
  8. METRONIDAZOLE. [Concomitant]
     Active Substance: METRONIDAZOLE
     Dosage: 500 MG, BID
  9. RAPID FLOW [Concomitant]
     Dosage: 1 PILL Q DAY
  10. SULFATRIM [Concomitant]
     Active Substance: SULFAMETHOXAZOLE\TRIMETHOPRIM
     Dosage: 3 PILLS A WEEK
  11. CIPROFLOXACIN. [Concomitant]
     Active Substance: CIPROFLOXACIN
     Dosage: 500 MG 1 TABLET BID FOR 5 DAYS
  12. ABT 199 CLINICAL TRIAL DRUG [Concomitant]
     Dosage: 4 X 100MG PILLS PER DAY

REACTIONS (1)
  - Death [Fatal]

NARRATIVE: CASE EVENT DATE: 20160528
